FAERS Safety Report 25107273 (Version 2)
Quarter: 2025Q2

REPORT INFORMATION
  Report Type: Report from Study
  Country: US (occurrence: US)
  Receive Date: 20250321
  Receipt Date: 20250506
  Transmission Date: 20250717
  Serious: Yes (Hospitalization, Other)
  Sender: JAZZ
  Company Number: US-JAZZ-JPI-P-021296

PATIENT
  Sex: Male
  Weight: 102 kg

DRUGS (18)
  1. XYREM [Suspect]
     Active Substance: SODIUM OXYBATE
     Indication: Narcolepsy
     Dosage: 3 GRAM, BID
     Route: 048
     Dates: start: 20100325
  2. XYREM [Suspect]
     Active Substance: SODIUM OXYBATE
     Indication: Cataplexy
     Route: 048
     Dates: start: 2010
  3. XYREM [Suspect]
     Active Substance: SODIUM OXYBATE
     Indication: Somnolence
     Route: 048
     Dates: start: 20100717
  4. XYREM [Suspect]
     Active Substance: SODIUM OXYBATE
     Dosage: 7.5 GRAM, BID
     Route: 048
  5. XYREM [Suspect]
     Active Substance: SODIUM OXYBATE
     Route: 048
  6. XYREM [Suspect]
     Active Substance: SODIUM OXYBATE
     Dosage: 4.5 GRAM, BID
     Route: 048
  7. DULOXETINE [Suspect]
     Active Substance: DULOXETINE
     Indication: Product used for unknown indication
     Dates: start: 201204
  8. MIRTAZAPINE [Suspect]
     Active Substance: MIRTAZAPINE
     Indication: Insomnia
     Dosage: 15 MILLIGRAM, QD
     Dates: start: 201205
  9. MECLIZINE [Concomitant]
     Active Substance: MECLIZINE HYDROCHLORIDE
     Indication: Dizziness
  10. HYOSCYAMINE [Concomitant]
     Active Substance: HYOSCYAMINE
     Indication: Abdominal pain upper
  11. ARMODAFINIL [Concomitant]
     Active Substance: ARMODAFINIL
     Indication: Narcolepsy
  12. NEXIUM I.V. [Concomitant]
     Active Substance: ESOMEPRAZOLE SODIUM
     Indication: Product used for unknown indication
     Dates: start: 20160106
  13. VITAMIN D3 [Concomitant]
     Active Substance: CHOLECALCIFEROL
     Indication: Product used for unknown indication
  14. CYANOCOBALAMIN\DEXPANTHENOL\NIACINAMIDE\PYRIDOXINE HYDROCHLORIDE\RIBOF [Concomitant]
     Active Substance: CYANOCOBALAMIN\DEXPANTHENOL\NIACINAMIDE\PYRIDOXINE HYDROCHLORIDE\RIBOFLAVIN 5^-PHOSPHATE SODIUM\THIA
     Indication: Product used for unknown indication
     Dates: start: 20201001
  15. MINERALS\VITAMINS [Concomitant]
     Active Substance: MINERALS\VITAMINS
     Indication: Product used for unknown indication
     Dates: start: 20201001
  16. TESSALON [Concomitant]
     Active Substance: BENZONATATE
     Indication: Product used for unknown indication
     Dates: start: 20230101
  17. METHYLPHENIDATE [Concomitant]
     Active Substance: METHYLPHENIDATE
     Indication: Product used for unknown indication
     Dates: start: 20230101
  18. PROBIOTICS NOS [Concomitant]
     Active Substance: PROBIOTICS NOS
     Indication: Product used for unknown indication
     Dates: start: 20240313

REACTIONS (18)
  - Dehydration [Unknown]
  - Blood pressure increased [Recovered/Resolved]
  - Dysphonia [Recovered/Resolved]
  - Heart rate increased [Recovered/Resolved]
  - Contusion [Recovered/Resolved]
  - Pyrexia [Recovered/Resolved]
  - Asthenia [Recovered/Resolved]
  - Initial insomnia [Recovered/Resolved]
  - Emotional disorder [Recovered/Resolved]
  - Anxiety [Recovered/Resolved]
  - Tremor [Recovered/Resolved]
  - Panic attack [Recovered/Resolved]
  - Decreased appetite [Recovered/Resolved]
  - Dizziness [Recovered/Resolved]
  - Insomnia [Not Recovered/Not Resolved]
  - Somnolence [Unknown]
  - Depression [Unknown]
  - Incorrect dose administered [Unknown]

NARRATIVE: CASE EVENT DATE: 20120101
